FAERS Safety Report 8128414-7 (Version None)
Quarter: 2012Q1

REPORT INFORMATION
  Report Type: 
  Country: None (occurrence: None)
  Receive Date: 20120210
  Receipt Date: 20120131
  Transmission Date: 20120608
  Serious: Yes (Death)
  Sender: FDA-Public Use
  Company Number: US-ROCHE-1027973

PATIENT
  Sex: Female
  Weight: 115 kg

DRUGS (5)
  1. SPIRONOLACTONE [Concomitant]
     Indication: OEDEMA
     Route: 048
  2. FLUOXETINE [Concomitant]
     Indication: DEPRESSION
     Route: 048
  3. PROPRANOLOL [Concomitant]
     Route: 048
  4. PEGASYS [Suspect]
     Indication: HEPATITIS C
     Route: 058
     Dates: start: 20101223, end: 20110113
  5. GLIPIZIDE [Concomitant]
     Indication: DIABETES MELLITUS
     Route: 048

REACTIONS (4)
  - MULTI-ORGAN FAILURE [None]
  - DEATH [None]
  - SEPSIS [None]
  - EMPHYSEMATOUS CYSTITIS [None]
